FAERS Safety Report 23806761 (Version 1)
Quarter: 2024Q2

REPORT INFORMATION
  Report Type: Report from Study
  Country: BR (occurrence: BR)
  Receive Date: 20240502
  Receipt Date: 20240502
  Transmission Date: 20240715
  Serious: Yes (Other)
  Sender: FDA-Public Use
  Company Number: BR-JNJFOC-20240486938

PATIENT
  Age: 43 Year
  Sex: Female
  Weight: 84 kg

DRUGS (1)
  1. SIMPONI [Suspect]
     Active Substance: GOLIMUMAB
     Indication: Colitis ulcerative
     Route: 058
     Dates: start: 20230131

REACTIONS (3)
  - Rectal haemorrhage [Not Recovered/Not Resolved]
  - Alopecia [Unknown]
  - Product dose omission issue [Unknown]
